FAERS Safety Report 5736918-7 (Version None)
Quarter: 2008Q2

REPORT INFORMATION
  Report Type: 
  Country: None (occurrence: None)
  Receive Date: 20080509
  Receipt Date: 20080425
  Transmission Date: 20081010
  Serious: Yes (Hospitalization)
  Sender: FDA-Public Use
  Company Number: 2008000976

PATIENT
  Age: 67 Year
  Sex: Male

DRUGS (14)
  1. TARCEVA [Suspect]
     Indication: LUNG NEOPLASM MALIGNANT
     Dosage: (150 MG, QD), ORAL
     Route: 048
     Dates: start: 20080103
  2. WARFARIN SODIUM [Concomitant]
  3. DESLORATADINE (DESLORATADINE) [Concomitant]
  4. SERETIDE (SERETIDE) [Concomitant]
  5. VENTOLIN [Concomitant]
  6. MAGNESIUM LACTATE (MAGNESIUM LACTATE) [Concomitant]
  7. SPIRIVA [Concomitant]
  8. METOPROLOL SUCCINATE [Concomitant]
  9. BUMETANIDE [Concomitant]
  10. MESALAMINE [Concomitant]
  11. DIGITOXIN TAB [Concomitant]
  12. OMEPRAZOLE [Concomitant]
  13. PARACET (PARACETAMOL) [Concomitant]
  14. RAMIPRIL [Concomitant]

REACTIONS (4)
  - GENERAL PHYSICAL HEALTH DETERIORATION [None]
  - LARGE INTESTINE PERFORATION [None]
  - ORAL INTAKE REDUCED [None]
  - VOMITING [None]
